FAERS Safety Report 6824991-4 (Version None)
Quarter: 2010Q3

REPORT INFORMATION
  Report Type: 
  Country: None (occurrence: None)
  Receive Date: 20100708
  Receipt Date: 20061204
  Transmission Date: 20110219
  Serious: No
  Sender: FDA-Public Use
  Company Number: US-PFIZER INC-2006152423

PATIENT
  Sex: Female
  Weight: 65.77 kg

DRUGS (4)
  1. CHANTIX [Suspect]
     Indication: SMOKING CESSATION THERAPY
     Dates: start: 20061125
  2. LEVOTHYROXINE SODIUM [Concomitant]
  3. LEVAQUIN [Concomitant]
  4. OTHER RESPIRATORY SYSTEM PRODUCTS [Concomitant]

REACTIONS (3)
  - FATIGUE [None]
  - INSOMNIA [None]
  - MUSCLE SPASMS [None]
